FAERS Safety Report 7166434-X (Version None)
Quarter: 2010Q4

REPORT INFORMATION
  Report Type: 
  Country: None (occurrence: None)
  Receive Date: 20101216
  Receipt Date: 20101202
  Transmission Date: 20110411
  Serious: Yes (Hospitalization)
  Sender: FDA-Public Use
  Company Number: PHHY2010AU24079

PATIENT
  Sex: Male

DRUGS (3)
  1. CLOZARIL [Suspect]
     Dosage: 800 MG
     Route: 048
     Dates: start: 20060213
  2. ARIPIPRAZOLE [Concomitant]
     Dosage: 300 MG
     Route: 048
  3. VALPROATE SODIUM [Concomitant]
     Dosage: 500 MG
     Route: 048

REACTIONS (6)
  - EXCORIATION [None]
  - MENTAL DISORDER [None]
  - PSYCHOTIC BEHAVIOUR [None]
  - REFUSAL OF TREATMENT BY PATIENT [None]
  - SCHIZOPHRENIA [None]
  - TREATMENT NONCOMPLIANCE [None]
